FAERS Safety Report 6075642-0 (Version None)
Quarter: 2009Q1

REPORT INFORMATION
  Report Type: 
  Country: None (occurrence: None)
  Receive Date: 20090212
  Receipt Date: 20090206
  Transmission Date: 20090719
  Serious: Yes (Other)
  Sender: FDA-Public Use
  Company Number: US-BAYER-200910418BCC

PATIENT
  Sex: Male

DRUGS (1)
  1. ALKA-SELTZER PLUS COLD [Suspect]
     Indication: DRUG USE FOR UNKNOWN INDICATION
     Dates: start: 20001101

REACTIONS (1)
  - CEREBROVASCULAR ACCIDENT [None]
